FAERS Safety Report 8482632-7 (Version None)
Quarter: 2012Q3

REPORT INFORMATION
  Report Type: 
  Country: None (occurrence: None)
  Receive Date: 20120702
  Receipt Date: 20120626
  Transmission Date: 20120928
  Serious: Yes (Hospitalization, Disabling)
  Sender: FDA-Public Use
  Company Number: US-MERCK-1111USA02617

PATIENT
  Age: 56 Year
  Sex: Female
  Weight: 55 kg

DRUGS (8)
  1. FOSAMAX [Suspect]
     Indication: OSTEOPOROSIS
     Route: 048
     Dates: start: 20070802, end: 20101129
  2. MEDROL [Concomitant]
     Route: 065
  3. ALENDRONATE SODIUM [Suspect]
     Route: 065
     Dates: start: 20100501
  4. ROBAXIN [Concomitant]
     Route: 065
  5. FOSAMAX [Suspect]
     Route: 048
     Dates: start: 20071201
  6. ACTONEL [Suspect]
     Indication: OSTEOPOROSIS
     Route: 048
     Dates: start: 20050505
  7. FOSAMAX PLUS D [Suspect]
     Route: 048
     Dates: start: 20080601
  8. BONIVA [Suspect]
     Indication: OSTEOPOROSIS
     Route: 048
     Dates: start: 20061201, end: 20070701

REACTIONS (13)
  - HERNIA [None]
  - DEPRESSION [None]
  - RADICULOPATHY [None]
  - SPINAL OSTEOARTHRITIS [None]
  - CHRONIC OBSTRUCTIVE PULMONARY DISEASE [None]
  - OSTEOARTHRITIS [None]
  - UPPER RESPIRATORY TRACT INFECTION [None]
  - RALES [None]
  - FEMUR FRACTURE [None]
  - ANXIETY [None]
  - GALLBLADDER DISORDER [None]
  - VITAMIN D DEFICIENCY [None]
  - DRUG INTOLERANCE [None]
